FAERS Safety Report 24753702 (Version 1)
Quarter: 2024Q4

REPORT INFORMATION
  Report Type: Report from Study
  Country: CA (occurrence: CA)
  Receive Date: 20241219
  Receipt Date: 20241219
  Transmission Date: 20250114
  Serious: Yes (Other)
  Sender: SANDOZ
  Company Number: CA-SANDOZ-SDZ2023CA059238

PATIENT
  Sex: Female

DRUGS (1)
  1. HYRIMOZ [Suspect]
     Active Substance: ADALIMUMAB-ADAZ
     Indication: Crohn^s disease
     Dosage: 40 MG, QW (PRE-FILLED PEN)
     Route: 065
     Dates: start: 20220215

REACTIONS (9)
  - Renal disorder [Unknown]
  - Blood urine present [Unknown]
  - Photosensitivity reaction [Unknown]
  - Family stress [Unknown]
  - Lip dry [Unknown]
  - Nervousness [Unknown]
  - Diarrhoea [Recovered/Resolved]
  - Oral herpes [Unknown]
  - Off label use [Unknown]
